FAERS Safety Report 7320304-2 (Version None)
Quarter: 2011Q1

REPORT INFORMATION
  Report Type: 
  Country: None (occurrence: None)
  Receive Date: 20110228
  Receipt Date: 20110224
  Transmission Date: 20110831
  Serious: Yes (Life-Threatening)
  Sender: FDA-Public Use
  Company Number: KR-ASTRAZENECA-2011SE10593

PATIENT

DRUGS (1)
  1. LIDOCAINE W/ EPINEPHRINE [Suspect]
     Indication: TYMPANOPLASTY
     Route: 058

REACTIONS (3)
  - VENTRICULAR TACHYCARDIA [None]
  - HYPERTENSION [None]
  - VENTRICULAR FIBRILLATION [None]
